FAERS Safety Report 19712283 (Version 2)
Quarter: 2021Q3

REPORT INFORMATION
  Report Type: Report from Study
  Country: US (occurrence: US)
  Receive Date: 20210817
  Receipt Date: 20210928
  Transmission Date: 20211014
  Serious: No
  Sender: FDA-Public Use
  Company Number: US-SUNOVION-2021SUN003062

PATIENT
  Age: 64 Year
  Weight: 83.9 kg

DRUGS (1)
  1. KYNMOBI [Suspect]
     Active Substance: APOMORPHINE HYDROCHLORIDE
     Indication: PARKINSON^S DISEASE
     Dosage: 20 MG
     Route: 060
     Dates: start: 20210617, end: 20210803

REACTIONS (7)
  - Oropharyngeal oedema [Recovered/Resolved]
  - Dry mouth [Recovered/Resolved]
  - Oropharyngeal pain [Recovered/Resolved]
  - Taste disorder [Recovered/Resolved]
  - Glossitis [Recovered/Resolved]
  - Mouth ulceration [Recovered/Resolved]
  - Oral discomfort [Recovered/Resolved]

NARRATIVE: CASE EVENT DATE: 20210803
